FAERS Safety Report 8775647 (Version 1)
Quarter: 2012Q4

REPORT INFORMATION
  Report Type: 
  Country: US (occurrence: US)
  Receive Date: 20120909
  Receipt Date: 20120909
  Transmission Date: 20130627
  Serious: No
  Sender: FDA-Public Use
  Company Number: US-009507513-1209USA000326

PATIENT

DRUGS (5)
  1. VICTRELIS [Suspect]
     Indication: HEPATITIS C
     Dosage: 800 mg, tid
     Route: 048
     Dates: start: 201112, end: 20120828
  2. PEGINTRON [Suspect]
     Indication: HEPATITIS C
     Dosage: 120 Microgram, qw
     Route: 058
     Dates: start: 201112, end: 20120828
  3. RIBAPAK [Concomitant]
     Indication: HEPATITIS C
     Dosage: UNK
     Dates: start: 201112, end: 20120828
  4. PROCRIT [Concomitant]
  5. PROPRANOLOL HYDROCHLORIDE [Concomitant]

REACTIONS (1)
  - Laboratory test abnormal [Unknown]
